FAERS Safety Report 7686066-4 (Version None)
Quarter: 2011Q3

REPORT INFORMATION
  Report Type: 
  Country: None (occurrence: None)
  Receive Date: 20110816
  Receipt Date: 20110811
  Transmission Date: 20111222
  Serious: Yes (Other)
  Sender: FDA-Public Use
  Company Number: US-PFIZER INC-2011182455

PATIENT
  Sex: Female
  Weight: 92.971 kg

DRUGS (6)
  1. LOVAZA [Concomitant]
     Indication: BLOOD CHOLESTEROL ABNORMAL
     Dosage: 1 G, DAILY
  2. LYRICA [Suspect]
     Indication: MYOCLONUS
     Dosage: 75 MG, 1X/DAY
     Route: 048
  3. BENADRYL [Suspect]
     Indication: PRURITUS
     Dosage: UNK
  4. LYRICA [Suspect]
     Indication: DYSKINESIA
     Dosage: 150 MG, DAILY
  5. ZANTAC [Suspect]
     Indication: PRURITUS
     Dosage: UNK
  6. IMDUR [Concomitant]
     Indication: ANGINA PECTORIS
     Dosage: 15MG (HALF TABLET OF 30 MG)

REACTIONS (5)
  - PRURITUS [None]
  - DRUG EFFECT DECREASED [None]
  - MYOCLONUS [None]
  - DYSKINESIA [None]
  - MIDDLE INSOMNIA [None]
